FAERS Safety Report 7246518-8 (Version None)
Quarter: 2011Q1

REPORT INFORMATION
  Report Type: 
  Country: None (occurrence: None)
  Receive Date: 20110126
  Receipt Date: 20110119
  Transmission Date: 20110831
  Serious: Yes (Other)
  Sender: FDA-Public Use
  Company Number: AR-AMGEN-ARGSP2010007490

PATIENT
  Age: 55 Year
  Sex: Female

DRUGS (3)
  1. OMEPRAZOLE [Concomitant]
     Dosage: UNK
     Route: 048
  2. ENBREL [Suspect]
     Indication: RHEUMATOID ARTHRITIS
     Dosage: 50 MG, WEEKLY
     Route: 058
     Dates: start: 20090501
  3. PREDNISONE [Concomitant]
     Dosage: 5 MG, 1X/DAY
     Route: 048

REACTIONS (4)
  - HAEMATOCHEZIA [None]
  - ESCHERICHIA URINARY TRACT INFECTION [None]
  - URETHRITIS NONINFECTIVE [None]
  - ANAEMIA [None]
